FAERS Safety Report 25178533 (Version 1)
Quarter: 2025Q2

REPORT INFORMATION
  Report Type: Spontaneous
  Country: US (occurrence: US)
  Receive Date: 20250409
  Receipt Date: 20250409
  Transmission Date: 20250716
  Serious: Yes (Life-Threatening, Hospitalization, Other)
  Sender: RISING PHARMACEUTICALS
  Company Number: US-RISINGPHARMA-US-2025RISLIT00173

PATIENT
  Age: 47 Year
  Sex: Female

DRUGS (1)
  1. MINOCYCLINE HYDROCHLORIDE [Suspect]
     Active Substance: MINOCYCLINE HYDROCHLORIDE
     Indication: Acne
     Route: 048

REACTIONS (7)
  - Aortic valve stenosis [Recovered/Resolved]
  - Aortic valve incompetence [Recovered/Resolved]
  - Heart failure with preserved ejection fraction [Recovered/Resolved]
  - Ochronosis [Recovered/Resolved]
  - Bicuspid aortic valve [Recovered/Resolved]
  - Aortic valve calcification [Recovered/Resolved]
  - Dyspnoea exertional [Recovered/Resolved]
